FAERS Safety Report 15316490 (Version 1)
Quarter: 2018Q3

REPORT INFORMATION
  Report Type: Spontaneous
  Country: JP (occurrence: JP)
  Receive Date: 20180824
  Receipt Date: 20180824
  Transmission Date: 20181010
  Serious: Yes (Hospitalization)
  Sender: FDA-Public Use
  Company Number: JP-JNJFOC-20180829659

PATIENT
  Age: 79 Year
  Sex: Female
  Weight: 91 kg

DRUGS (8)
  1. ELIQUIS [Concomitant]
     Active Substance: APIXABAN
     Dosage: STARTED BEFORE 2009
     Route: 048
  2. AMARYL [Concomitant]
     Active Substance: GLIMEPIRIDE
     Indication: TYPE 2 DIABETES MELLITUS
     Dosage: STARTED BEFORE 2009
     Route: 048
     Dates: start: 20160517
  3. LIVALO [Concomitant]
     Active Substance: PITAVASTATIN CALCIUM
     Dosage: STARTED BEFORE 2009
     Route: 048
     Dates: start: 2013
  4. TRULICITY [Concomitant]
     Active Substance: DULAGLUTIDE
     Indication: TYPE 2 DIABETES MELLITUS
     Dosage: STARTED BEFORE 2009
     Route: 051
     Dates: start: 20170328
  5. CANAGLU [Suspect]
     Active Substance: CANAGLIFLOZIN
     Indication: TYPE 2 DIABETES MELLITUS
     Route: 048
     Dates: start: 20160408
  6. MAINTATE [Concomitant]
     Active Substance: BISOPROLOL FUMARATE
     Dosage: STARTED BEFORE 2009
     Route: 048
     Dates: start: 2013
  7. LANTUS [Concomitant]
     Active Substance: INSULIN GLARGINE
     Indication: TYPE 2 DIABETES MELLITUS
     Dosage: STARTED BEFORE 2009
     Route: 051
     Dates: start: 20150319
  8. OLMETEC [Concomitant]
     Active Substance: OLMESARTAN MEDOXOMIL
     Dosage: STARTED BEFORE 2009
     Route: 048
     Dates: start: 2013

REACTIONS (2)
  - Atrial fibrillation [Recovering/Resolving]
  - Cardiac failure congestive [Recovering/Resolving]

NARRATIVE: CASE EVENT DATE: 20180322
